FAERS Safety Report 9023462 (Version 1)
Quarter: 2013Q1

REPORT INFORMATION
  Report Type: Spontaneous
  Country: US (occurrence: US)
  Receive Date: 20130121
  Receipt Date: 20130121
  Transmission Date: 20140127
  Serious: No
  Sender: FDA-Public Use
  Company Number: US-OPTIMER PHARMACEUTICALS, INC.-20120149

PATIENT
  Age: 83 None
  Sex: Female

DRUGS (10)
  1. DIFICID [Suspect]
     Indication: CLOSTRIDIAL INFECTION
     Dosage: 200 MG, BID
     Dates: start: 20120409, end: 201204
  2. DIFICID [Suspect]
     Dosage: 200 MG, BID
     Dates: start: 20120829, end: 201209
  3. DIFICID [Suspect]
     Dosage: 200 MG, BID
     Dates: start: 20121025
  4. COUMADIN [Concomitant]
     Dosage: UNK
  5. OMEPRAZOLE [Concomitant]
     Dosage: UNK
  6. CRESTOR [Concomitant]
     Dosage: UNK
  7. FLORASTOR [Concomitant]
     Dosage: UNK
  8. FUROSEMIDE [Concomitant]
     Dosage: UNK
  9. LEVOTHYROXINE [Concomitant]
     Dosage: UNK
  10. CALCIUM + IRON [Concomitant]
     Dosage: UNK

REACTIONS (2)
  - Clostridium difficile infection [Unknown]
  - Disease recurrence [Unknown]
